FAERS Safety Report 8115479-1 (Version None)
Quarter: 2012Q1

REPORT INFORMATION
  Report Type: 
  Country: None (occurrence: None)
  Receive Date: 20120206
  Receipt Date: 20120124
  Transmission Date: 20120608
  Serious: Yes (Hospitalization)
  Sender: FDA-Public Use
  Company Number: GB-AMGEN-GBRCT2011065820

PATIENT
  Age: 14 Year
  Sex: Male
  Weight: 55 kg

DRUGS (8)
  1. ETANERCEPT [Suspect]
     Indication: JUVENILE ARTHRITIS
     Dosage: 25 MG, 2 TIMES/WK
     Route: 058
     Dates: start: 20100527, end: 20101115
  2. METHYLPREDNISOLONE [Concomitant]
     Dosage: UNK
  3. KENALOG [Concomitant]
     Dosage: UNK (8 UNITS UNSPECIFIED)
     Dates: start: 20090101
  4. PIROXICAM [Concomitant]
     Dosage: 20 MG, AS NEEDED AT NIGHT
     Route: 048
     Dates: start: 20100601
  5. KENALOG [Concomitant]
     Dosage: 8 (UNITS UNSPECIFIED) TO ANKLES, WRISTS, KNEES AND HIPS X 2
  6. ETANERCEPT [Suspect]
     Dosage: 50 MG, QWK
     Dates: start: 20101115
  7. TRIAMCINOLONE HEXACETONIDE [Concomitant]
     Dosage: 4.00 (BOTH KNEES)
     Dates: start: 20100601
  8. PREDNISOLONE [Concomitant]
     Dosage: UNK
     Route: 048
     Dates: start: 20100601

REACTIONS (1)
  - JUVENILE ARTHRITIS [None]
